FAERS Safety Report 4683124-3 (Version None)
Quarter: 2005Q2

REPORT INFORMATION
  Report Type: 
  Country: None (occurrence: None)
  Receive Date: 20050602
  Receipt Date: 20050329
  Transmission Date: 20051028
  Serious: No
  Sender: FDA-Public Use
  Company Number: USA050394420

PATIENT
  Age: 38 Year
  Sex: Female
  Weight: 73 kg

DRUGS (5)
  1. CYMBALTA [Suspect]
     Indication: DEPRESSION
     Dosage: 60 MG IN THE MORNING
     Dates: start: 20050301
  2. STRATTERA [Suspect]
     Indication: DEPRESSION
     Dosage: 80 MG DAY
     Dates: start: 20040101
  3. KLONOPIN [Concomitant]
  4. NEXIUM [Concomitant]
  5. PAXIL [Concomitant]

REACTIONS (4)
  - DEPRESSION [None]
  - MALAISE [None]
  - MIDDLE INSOMNIA [None]
  - TOOTHACHE [None]
